FAERS Safety Report 15357497 (Version 1)
Quarter: 2018Q3

REPORT INFORMATION
  Report Type: Spontaneous
  Country: US (occurrence: US)
  Receive Date: 20180906
  Receipt Date: 20180906
  Transmission Date: 20181010
  Serious: No
  Sender: FDA-Public Use
  Company Number: US-BIOGEN-2017BI00395958

PATIENT
  Sex: Female

DRUGS (1)
  1. AVONEX [Suspect]
     Active Substance: INTERFERON BETA-1A
     Indication: MULTIPLE SCLEROSIS
     Dosage: AVONEX LYOPHILIZED SOLUTION
     Route: 065
     Dates: start: 20050901

REACTIONS (3)
  - Memory impairment [Unknown]
  - Muscle disorder [Unknown]
  - Muscular weakness [Unknown]
